FAERS Safety Report 8851077 (Version 2)
Quarter: 2012Q4

REPORT INFORMATION
  Report Type: 
  Country: BR (occurrence: BR)
  Receive Date: 20121019
  Receipt Date: 20121217
  Transmission Date: 20130627
  Serious: Yes (Other)
  Sender: FDA-Public Use
  Company Number: BR-PFIZER INC-2012259177

PATIENT
  Age: 60 Year
  Sex: Male
  Weight: 96 kg

DRUGS (5)
  1. SUTENT [Suspect]
     Indication: RENAL CANCER
     Dosage: 50 mg, 1x/day (one tablet once a day)
     Route: 048
     Dates: start: 20120926
  2. INSULIN [Concomitant]
  3. PLASIL [Concomitant]
  4. ENALAPRIL [Concomitant]
  5. ATENOLOL [Concomitant]

REACTIONS (7)
  - General physical health deterioration [Unknown]
  - Ascites [Unknown]
  - Nausea [Unknown]
  - Pleuritic pain [Unknown]
  - Abdominal pain [Unknown]
  - Hypoglycaemia [Unknown]
  - Dyspnoea [Unknown]
